FAERS Safety Report 25969854 (Version 1)
Quarter: 2025Q4

REPORT INFORMATION
  Report Type: Spontaneous
  Country: AU (occurrence: AU)
  Receive Date: 20251028
  Receipt Date: 20251028
  Transmission Date: 20260117
  Serious: Yes (Other)
  Sender: MYLAN
  Company Number: AU-MYLANLABS-2025M1090689

PATIENT
  Age: 42 Year
  Sex: Male
  Weight: 114 kg

DRUGS (1)
  1. CLOZARIL [Suspect]
     Active Substance: CLOZAPINE
     Indication: Schizophrenia
     Dosage: 250 MILLIGRAM

REACTIONS (7)
  - Antipsychotic drug level decreased [Not Recovered/Not Resolved]
  - Troponin increased [Recovering/Resolving]
  - Blood pressure increased [Not Recovered/Not Resolved]
  - Salivary hypersecretion [Recovering/Resolving]
  - Heart rate increased [Recovering/Resolving]
  - Weight increased [Recovering/Resolving]
  - Body mass index increased [Unknown]

NARRATIVE: CASE EVENT DATE: 20250709
